FAERS Safety Report 6581786-7 (Version None)
Quarter: 2010Q1

REPORT INFORMATION
  Report Type: 
  Country: None (occurrence: None)
  Receive Date: 20100215
  Receipt Date: 20100209
  Transmission Date: 20100710
  Serious: Yes (Death)
  Sender: FDA-Public Use
  Company Number: PHHY2010CA05177

PATIENT
  Sex: Female

DRUGS (7)
  1. ACLASTA [Suspect]
     Indication: OSTEOPOROSIS
     Dosage: 5 MG, UNK
     Route: 042
     Dates: start: 20090113
  2. LOSEC [Concomitant]
     Dosage: 20 MG, TID
  3. CALCIUM WITH VITAMIN D [Concomitant]
     Dosage: UNK
     Route: 042
  4. SYNTHROID [Concomitant]
     Dosage: 75 MG DAILY
  5. VOLTAREN [Concomitant]
     Dosage: 75 PRN
  6. LEVAQUIN [Concomitant]
     Dosage: UNK
     Dates: start: 20100114
  7. NASONEX [Concomitant]
     Dosage: UNK
     Dates: start: 20100114

REACTIONS (3)
  - CARDIO-RESPIRATORY ARREST [None]
  - MYOCARDIAL INFARCTION [None]
  - RESUSCITATION [None]
